FAERS Safety Report 10748468 (Version 2)
Quarter: 2015Q2

REPORT INFORMATION
  Report Type: Report from Study
  Country: US (occurrence: None)
  Receive Date: 20150120
  Receipt Date: 20150420
  Transmission Date: 20150821
  Serious: Yes (Other)
  Sender: FDA-Public Use
  Company Number: AEGR000848

PATIENT
  Age: 61 Year
  Sex: Female
  Weight: 78.5 kg

DRUGS (6)
  1. JUXTAPID [Suspect]
     Active Substance: LOMITAPIDE MESYLATE
     Indication: DRUG INTOLERANCE
     Route: 048
     Dates: start: 20141020, end: 20141124
  2. OMEGA  3 (FISH OIL) [Concomitant]
     Active Substance: OMEGA-3 FATTY ACIDS
  3. MELANTONIN (MELATONIN) [Concomitant]
  4. ASPIRIN (ACETYLSALICYLIC ACID) [Concomitant]
     Active Substance: ASPIRIN
  5. JUXTAPID [Suspect]
     Active Substance: LOMITAPIDE MESYLATE
     Indication: DYSLIPIDAEMIA
     Route: 048
     Dates: start: 20141020, end: 20141124
  6. VITAMIN E (TOCOPHERYL ACETATE) [Concomitant]

REACTIONS (12)
  - Diarrhoea [None]
  - Nausea [None]
  - Pain [None]
  - Fatigue [None]
  - Influenza [None]
  - Therapy cessation [None]
  - Off label use [None]
  - Hepatic enzyme increased [None]
  - Flatulence [None]
  - Vomiting [None]
  - Weight decreased [None]
  - Headache [None]

NARRATIVE: CASE EVENT DATE: 2014
